FAERS Safety Report 17755233 (Version 2)
Quarter: 2020Q2

REPORT INFORMATION
  Report Type: Report from Study
  Country: None (occurrence: ES)
  Receive Date: 20200507
  Receipt Date: 20200508
  Transmission Date: 20200714
  Serious: Yes (Death)
  Sender: FDA-Public Use
  Company Number: ES-ABBVIE-20K-144-3394480-00

PATIENT
  Age: 76 Year
  Sex: Male
  Weight: 63 kg

DRUGS (1)
  1. DUODOPA [Suspect]
     Active Substance: CARBIDOPA\LEVODOPA
     Indication: PARKINSON^S DISEASE
     Route: 050
     Dates: start: 20170329, end: 20200503

REACTIONS (2)
  - Myocardial infarction [Fatal]
  - Pyrexia [Recovered/Resolved]

NARRATIVE: CASE EVENT DATE: 20200428
